FAERS Safety Report 25774844 (Version 2)
Quarter: 2025Q4

REPORT INFORMATION
  Report Type: Spontaneous
  Country: JP (occurrence: JP)
  Receive Date: 20250908
  Receipt Date: 20251007
  Transmission Date: 20260118
  Serious: No
  Sender: CSL BEHRING
  Company Number: JP-BEH-2025217970

PATIENT
  Age: 27 Year
  Sex: Male

DRUGS (2)
  1. IDELVION [Suspect]
     Active Substance: COAGULATION FACTOR IX RECOMBINANT HUMAN
     Indication: Factor IX deficiency
     Dosage: 3500 IU, QOW, CUBITAL FOSSA
     Route: 065
     Dates: start: 20241201, end: 20250801
  2. IDELVION [Suspect]
     Active Substance: COAGULATION FACTOR IX RECOMBINANT HUMAN
     Indication: Factor IX deficiency
     Dosage: 3500 IU, QOW, CUBITAL FOSSA
     Route: 065
     Dates: start: 20241201, end: 20250801

REACTIONS (2)
  - Brain death [Fatal]
  - Cerebral haemorrhage [Fatal]
